FAERS Safety Report 14411397 (Version 1)
Quarter: 2018Q1

REPORT INFORMATION
  Report Type: Spontaneous
  Country: US (occurrence: US)
  Receive Date: 20180119
  Receipt Date: 20180119
  Transmission Date: 20180509
  Serious: No
  Sender: FDA-Public Use
  Company Number: US-GLAXOSMITHKLINE-US2018008143

PATIENT
  Age: 96 Year
  Sex: Female

DRUGS (1)
  1. PREVACID 24 HR [Suspect]
     Active Substance: LANSOPRAZOLE
     Indication: CONSTIPATION
     Dosage: UNK, USED TWICE A WEEK
     Route: 048

REACTIONS (3)
  - Drug effective for unapproved indication [Unknown]
  - Intentional product misuse [Unknown]
  - Product use in unapproved indication [Unknown]
